FAERS Safety Report 10547889 (Version 1)
Quarter: 2014Q4

REPORT INFORMATION
  Report Type: Spontaneous
  Country: US (occurrence: None)
  Receive Date: 20141027
  Receipt Date: 20141027
  Transmission Date: 20150529
  Serious: No
  Sender: FDA-Public Use
  Company Number: None

PATIENT
  Age: 33 Year
  Sex: Female
  Weight: 61.24 kg

DRUGS (1)
  1. COPPER IUD [Suspect]
     Active Substance: COPPER
     Dates: start: 20131001, end: 20131015

REACTIONS (9)
  - Depressed mood [None]
  - Vulvovaginal pruritus [None]
  - Complication of device removal [None]
  - Lethargy [None]
  - Vaginal haemorrhage [None]
  - Insomnia [None]
  - Muscle spasms [None]
  - Depression [None]
  - Headache [None]

NARRATIVE: CASE EVENT DATE: 20141015
